FAERS Safety Report 6323394-9 (Version None)
Quarter: 2009Q3

REPORT INFORMATION
  Report Type: 
  Country: None (occurrence: None)
  Receive Date: 20090824
  Receipt Date: 20090409
  Transmission Date: 20100115
  Serious: No
  Sender: FDA-Public Use
  Company Number: US-ABBOTT-09P-163-0566494-00

PATIENT
  Age: 68 Year
  Sex: Male

DRUGS (2)
  1. NIASPAN [Suspect]
     Indication: BLOOD TRIGLYCERIDES INCREASED
     Route: 048
  2. NIASPAN [Suspect]
     Dosage: 1/2 IN AM, 1/2 AT NIGHT
     Route: 048

REACTIONS (2)
  - DIZZINESS [None]
  - PRESYNCOPE [None]
